FAERS Safety Report 9821739 (Version 1)
Quarter: 2014Q1

REPORT INFORMATION
  Report Type: Spontaneous
  Country: US (occurrence: US)
  Receive Date: 20140116
  Receipt Date: 20140116
  Transmission Date: 20141002
  Serious: No
  Sender: FDA-Public Use
  Company Number: US-PFIZER INC-2014013522

PATIENT
  Age: 81 Year
  Sex: Male
  Weight: 74.38 kg

DRUGS (2)
  1. LYRICA [Suspect]
     Indication: DIABETIC NEUROPATHY
     Dosage: 50 MG, 2X/DAY
     Route: 048
  2. LYRICA [Suspect]
     Dosage: 300 MG, 2X/DAY
     Route: 048
     Dates: end: 20140111

REACTIONS (3)
  - Vision blurred [Unknown]
  - Dry mouth [Unknown]
  - Sleep disorder [Unknown]
